FAERS Safety Report 7767247-8 (Version None)
Quarter: 2011Q3

REPORT INFORMATION
  Report Type: 
  Country: None (occurrence: None)
  Receive Date: 20110922
  Receipt Date: 20110113
  Transmission Date: 20111222
  Serious: No
  Sender: FDA-Public Use
  Company Number: US-ASTRAZENECA-2008UW18327

PATIENT
  Age: 47 Year
  Sex: Male
  Weight: 103.9 kg

DRUGS (15)
  1. SEROQUEL [Suspect]
     Indication: BIPOLAR DISORDER
     Route: 048
     Dates: start: 20030823
  2. SEROQUEL [Suspect]
     Dosage: 100 MG, 200 MG
     Route: 048
     Dates: start: 20030801, end: 20040601
  3. DIAZEPAM [Concomitant]
     Dates: start: 20030713
  4. HALDOL [Concomitant]
     Dates: start: 20080101
  5. ZYPREXA [Concomitant]
     Dates: start: 20030724
  6. DEPAKOTE [Concomitant]
     Dates: start: 20030501, end: 20050901
  7. SEROQUEL [Suspect]
     Dosage: 100 MG, 200 MG
     Route: 048
     Dates: start: 20030801, end: 20040601
  8. SEROQUEL [Suspect]
     Dosage: 100 MG, 200 MG
     Route: 048
     Dates: start: 20041217, end: 20060101
  9. ZYPREXA [Concomitant]
     Dates: start: 20030528
  10. SEROQUEL [Suspect]
     Indication: SCHIZOPHRENIA
     Route: 048
     Dates: start: 20030823
  11. ABILIFY [Concomitant]
     Dates: start: 20030704
  12. GEODON [Concomitant]
     Dates: start: 20030101, end: 20030701
  13. RISPERDAL [Concomitant]
     Dates: start: 20080101
  14. ATENOLOL/CHLORTHALIDON [Concomitant]
     Dosage: 50/25
     Dates: start: 20030706
  15. SEROQUEL [Suspect]
     Dosage: 100 MG, 200 MG
     Route: 048
     Dates: start: 20041217, end: 20060101

REACTIONS (5)
  - LACERATION [None]
  - PNEUMONIA [None]
  - ARTHRITIS [None]
  - RESPIRATORY DISORDER [None]
  - DIABETES MELLITUS [None]
